FAERS Safety Report 7957564-0 (Version None)
Quarter: 2011Q4

REPORT INFORMATION
  Report Type: 
  Country: None (occurrence: None)
  Receive Date: 20111201
  Receipt Date: 20111115
  Transmission Date: 20120403
  Serious: Yes (Other)
  Sender: FDA-Public Use
  Company Number: FK201102775

PATIENT
  Age: 47 Year
  Sex: Male

DRUGS (9)
  1. RITUXIMAB (RITUXIMAB) (RITUXIMAB) [Suspect]
     Indication: DIFFUSE LARGE B-CELL LYMPHOMA
  2. EFAVIRENZ [Suspect]
  3. DOXORUBICIN HCL [Suspect]
     Indication: DIFFUSE LARGE B-CELL LYMPHOMA
  4. VINCRISTINE [Suspect]
     Indication: DIFFUSE LARGE B-CELL LYMPHOMA
  5. LAMIVUDINE (LAMIVUDINE) (LAMIVUDINE) [Suspect]
  6. CYCLOPHOSPHAMIDE [Suspect]
     Indication: DIFFUSE LARGE B-CELL LYMPHOMA
  7. PREDNISOLONE [Suspect]
     Indication: DIFFUSE LARGE B-CELL LYMPHOMA
  8. TENOFOVIR DISOPROXIL FUMARATE [Suspect]
     Indication: DIFFUSE LARGE B-CELL LYMPHOMA
  9. FILGRASTIM (FILGRASTIM) (FILGRASTIM) [Suspect]

REACTIONS (3)
  - BLOOD TEST ABNORMAL [None]
  - VIRAL INFECTION [None]
  - FEBRILE NEUTROPENIA [None]
